FAERS Safety Report 12270530 (Version 1)
Quarter: 2016Q2

REPORT INFORMATION
  Report Type: Spontaneous
  Country: US (occurrence: None)
  Receive Date: 20160414
  Receipt Date: 20160414
  Transmission Date: 20160815
  Serious: Yes (Life-Threatening, Hospitalization, Disabling)
  Sender: FDA-Public Use
  Company Number: None

PATIENT
  Age: 81 Year
  Sex: Female

DRUGS (3)
  1. WARFARIN, 5 MG [Suspect]
     Active Substance: WARFARIN
     Indication: TRANSIENT ISCHAEMIC ATTACK
     Dosage: OROPHARINGEAL
     Route: 049
  2. WARFARIN, 5 MG [Suspect]
     Active Substance: WARFARIN
     Indication: DEEP VEIN THROMBOSIS
     Dosage: OROPHARINGEAL
     Route: 049
  3. WARFARIN, 5 MG [Suspect]
     Active Substance: WARFARIN
     Indication: PULMONARY EMBOLISM
     Dosage: OROPHARINGEAL
     Route: 049

REACTIONS (2)
  - Haemorrhage intracranial [None]
  - Treatment noncompliance [None]

NARRATIVE: CASE EVENT DATE: 20140904
